FAERS Safety Report 7601586-6 (Version None)
Quarter: 2011Q3

REPORT INFORMATION
  Report Type: 
  Country: None (occurrence: None)
  Receive Date: 20110711
  Receipt Date: 20110628
  Transmission Date: 20111222
  Serious: Yes (Hospitalization, Other)
  Sender: FDA-Public Use
  Company Number: PHHY2011FR55978

PATIENT
  Sex: Male

DRUGS (13)
  1. PRAVASTATIN [Concomitant]
  2. OMEPRAZOLE [Concomitant]
  3. COZAAR [Concomitant]
  4. GLUCOPHAGE [Concomitant]
  5. CALCIUM CHANNEL BLOCKERS [Concomitant]
     Indication: HYPERTENSION
  6. RENIN-ANGIOTENSIN SYSTEM, AGENTS ACTING ON [Concomitant]
     Indication: HYPERTENSION
  7. EZETIMIBE [Concomitant]
  8. RASILEZ [Suspect]
     Indication: HYPERTENSION
     Dosage: 150 MG, QD
     Route: 048
     Dates: start: 20110323, end: 20110601
  9. BETA ADRENERGIC BLOCKING DRUGS [Concomitant]
     Indication: HYPERTENSION
  10. ASPIRIN [Concomitant]
  11. ISOPTIN [Concomitant]
  12. PLAVIX [Concomitant]
  13. HYPERIUM [Concomitant]

REACTIONS (2)
  - ABDOMINAL PAIN [None]
  - SPLENIC EMBOLISM [None]
